FAERS Safety Report 5166531-4 (Version None)
Quarter: 2006Q4

REPORT INFORMATION
  Report Type: 
  Country: None (occurrence: None)
  Receive Date: 20061130
  Receipt Date: 20061130
  Transmission Date: 20070319
  Serious: Yes (Death)
  Sender: FDA-Public Use
  Company Number: None

PATIENT
  Age: 59 Year
  Sex: Male
  Weight: 76 kg

DRUGS (3)
  1. PACLITAXEL [Suspect]
     Indication: LUNG NEOPLASM MALIGNANT
     Dosage: 425 MG X1 IV DRIP
     Route: 042
  2. FAMOTIDINE [Concomitant]
  3. CISPLATIN [Concomitant]

REACTIONS (1)
  - CARDIO-RESPIRATORY ARREST [None]
